FAERS Safety Report 5107686-7 (Version None)
Quarter: 2006Q3

REPORT INFORMATION
  Report Type: 
  Country: None (occurrence: None)
  Receive Date: 20060919
  Receipt Date: 20060727
  Transmission Date: 20061208
  Serious: Yes (Hospitalization, Other)
  Sender: FDA-Public Use
  Company Number: US-BAYER-200613279BCC

PATIENT
  Sex: Female
  Weight: 70 kg

DRUGS (1)
  1. ASPIRIN [Suspect]
     Indication: ARTHRITIS
     Route: 048
     Dates: end: 19660101

REACTIONS (5)
  - ABORTION SPONTANEOUS [None]
  - EPISTAXIS [None]
  - HAEMORRHAGE [None]
  - MENORRHAGIA [None]
  - STOMACH DISCOMFORT [None]
